FAERS Safety Report 7412827-2 (Version None)
Quarter: 2011Q2

REPORT INFORMATION
  Report Type: 
  Country: None (occurrence: None)
  Receive Date: 20110413
  Receipt Date: 20110405
  Transmission Date: 20111010
  Serious: Yes (Disabling)
  Sender: FDA-Public Use
  Company Number: B0711737A

PATIENT
  Age: 2 Decade
  Sex: Female
  Weight: 48 kg

DRUGS (17)
  1. KYTRIL [Concomitant]
     Dosage: 3MG PER DAY
     Route: 042
     Dates: end: 20101004
  2. GANCICLOVIR SODIUM [Concomitant]
     Dosage: 250MG PER DAY
     Route: 042
     Dates: start: 20100928, end: 20101005
  3. CYLOCIDE [Concomitant]
     Dosage: 30MG PER DAY
     Route: 042
     Dates: start: 20101001, end: 20101003
  4. METHOTREXATE [Concomitant]
     Dosage: 10MG PER DAY
     Route: 065
     Dates: start: 20101009
  5. PREDONINE [Concomitant]
     Indication: IMMUNOSUPPRESSION
     Dosage: 45MG PER DAY
     Route: 065
     Dates: start: 20101110
  6. ALKERAN [Suspect]
     Indication: ALLOGENIC BONE MARROW TRANSPLANTATION THERAPY
     Dosage: 100MG PER DAY
     Route: 042
     Dates: start: 20100927, end: 20100927
  7. ETOPOSIDE [Suspect]
     Indication: ALLOGENIC BONE MARROW TRANSPLANTATION THERAPY
     Dosage: 140MG PER DAY
     Route: 042
     Dates: start: 20101002, end: 20101004
  8. METHOTREXATE [Concomitant]
     Dosage: 10MG PER DAY
     Route: 065
     Dates: start: 20101012
  9. ALKERAN [Suspect]
     Dosage: 100MG PER DAY
     Route: 042
     Dates: start: 20101003, end: 20101004
  10. TACROLIMUS HYDRATE [Concomitant]
     Indication: IMMUNOSUPPRESSION
     Dosage: .7MG PER DAY
     Route: 065
     Dates: start: 20101005, end: 20101123
  11. DEXACORT [Concomitant]
     Indication: IMMUNOSUPPRESSION
     Dosage: 50MG PER DAY
     Route: 042
     Dates: start: 20101007, end: 20101109
  12. MAXIPIME [Concomitant]
     Dosage: 1000MG PER DAY
     Route: 042
     Dates: start: 20101004, end: 20101015
  13. FLUDARA [Concomitant]
     Indication: ALLOGENIC BONE MARROW TRANSPLANTATION THERAPY
     Dosage: 40MG PER DAY
     Route: 042
     Dates: start: 20100929, end: 20101004
  14. BAKTAR [Concomitant]
     Dosage: 3IUAX PER DAY
     Route: 048
     Dates: start: 20100927
  15. CEFMETAZON [Concomitant]
     Dosage: 1000MG PER DAY
     Route: 042
     Dates: start: 20100930, end: 20101004
  16. METHOTREXATE [Concomitant]
     Indication: IMMUNOSUPPRESSION
     Dosage: 10MG PER DAY
     Route: 065
     Dates: start: 20101007
  17. PRODIF [Concomitant]
     Dosage: 400MG PER DAY
     Route: 042
     Dates: start: 20101004, end: 20101020

REACTIONS (2)
  - DIARRHOEA [None]
  - ABDOMINAL PAIN [None]
